FAERS Safety Report 13532594 (Version 1)
Quarter: 2017Q2

REPORT INFORMATION
  Report Type: Spontaneous
  Country: GB (occurrence: GB)
  Receive Date: 20170510
  Receipt Date: 20170510
  Transmission Date: 20170830
  Serious: Yes (Other)
  Sender: FDA-Public Use
  Company Number: GB-GALDERMA-GB17003154

PATIENT
  Age: 31 Year
  Sex: Female
  Weight: 48 kg

DRUGS (2)
  1. ADAPALENE. [Suspect]
     Active Substance: ADAPALENE
     Indication: ACNE
     Route: 061
     Dates: start: 201604
  2. NIACINAMIDE [Concomitant]
     Active Substance: NIACINAMIDE
     Indication: ACNE
     Route: 061

REACTIONS (1)
  - Erythema [Recovering/Resolving]

NARRATIVE: CASE EVENT DATE: 20170417
